FAERS Safety Report 18190497 (Version 2)
Quarter: 2020Q3

REPORT INFORMATION
  Report Type: Report from Study
  Country: US (occurrence: US)
  Receive Date: 20200824
  Receipt Date: 20200911
  Transmission Date: 20201103
  Serious: Yes (Hospitalization)
  Sender: FDA-Public Use
  Company Number: US-EXELIXIS-CABO-20032181

PATIENT
  Sex: Female

DRUGS (16)
  1. CABOMETYX [Suspect]
     Active Substance: CABOZANTINIB S-MALATE
     Indication: CHOROID MELANOMA
     Dosage: 60 MG, QD
     Dates: start: 2019, end: 20200220
  2. VITAMIN D [Concomitant]
     Active Substance: VITAMIN D NOS
     Dosage: UNK
  3. CABOMETYX [Suspect]
     Active Substance: CABOZANTINIB S-MALATE
     Indication: METASTASES TO PANCREAS
     Dosage: 40 MG, QD
     Dates: start: 202007
  4. CALCIUM [Concomitant]
     Active Substance: CALCIUM
     Dosage: UNK
  5. CABOMETYX [Suspect]
     Active Substance: CABOZANTINIB S-MALATE
     Indication: METASTASES TO LIVER
     Dosage: 40 MG, QD
     Dates: start: 20200302, end: 202007
  6. DORZOLAMIDE [Concomitant]
     Active Substance: DORZOLAMIDE
     Dosage: UNK
  7. PREDNISOLONE. [Concomitant]
     Active Substance: PREDNISOLONE
     Dosage: UNK
  8. OPDIVO [Suspect]
     Active Substance: NIVOLUMAB
     Indication: METASTASES TO PANCREAS
  9. HYDROCORTISONE. [Concomitant]
     Active Substance: HYDROCORTISONE
     Dosage: UNK
  10. YERVOY [Suspect]
     Active Substance: IPILIMUMAB
     Indication: METASTASES TO LIVER
  11. OPDIVO [Suspect]
     Active Substance: NIVOLUMAB
     Indication: CHOROID MELANOMA
     Dosage: UNK UNK, Q2WEEKS
     Dates: start: 201910, end: 202007
  12. YERVOY [Suspect]
     Active Substance: IPILIMUMAB
     Indication: METASTASES TO PANCREAS
  13. COMBIGAN [Concomitant]
     Active Substance: BRIMONIDINE TARTRATE\TIMOLOL MALEATE
     Dosage: UNK
  14. YERVOY [Suspect]
     Active Substance: IPILIMUMAB
     Indication: CHOROID MELANOMA
     Dosage: EVERY 6WEEKS
     Dates: start: 201910
  15. AMLODIPINE [Concomitant]
     Active Substance: AMLODIPINE BESYLATE
     Dosage: UNK
  16. OPDIVO [Suspect]
     Active Substance: NIVOLUMAB
     Indication: METASTASES TO LIVER
     Dosage: UNK UNK, Q2WEEKS
     Dates: start: 202007

REACTIONS (6)
  - Pulmonary embolism [Recovered/Resolved]
  - Addison^s disease [Recovered/Resolved]
  - Malignant neoplasm progression [Unknown]
  - Blister [Not Recovered/Not Resolved]
  - Off label use [Unknown]
  - Blood pressure increased [Recovered/Resolved]
